FAERS Safety Report 12552739 (Version 2)
Quarter: 2017Q1

REPORT INFORMATION
  Report Type: Spontaneous
  Country: FR (occurrence: FR)
  Receive Date: 20160713
  Receipt Date: 20170206
  Transmission Date: 20170428
  Serious: Yes (Hospitalization)
  Sender: FDA-Public Use
  Company Number: FR-IMPAX LABORATORIES, INC-2016-IPXL-00736

PATIENT
  Age: 55 Year
  Sex: Female

DRUGS (3)
  1. ADRENACLICK [Suspect]
     Active Substance: EPINEPHRINE
     Dosage: 0.5 MG, UNK
     Route: 042
  2. EPHEDRINE. [Concomitant]
     Active Substance: EPHEDRINE
     Indication: CIRCULATORY COLLAPSE
     Dosage: UNK
     Route: 065
  3. ADRENACLICK [Suspect]
     Active Substance: EPINEPHRINE
     Indication: ANAPHYLACTIC SHOCK
     Dosage: UNK
     Route: 042

REACTIONS (5)
  - Pulmonary oedema [Unknown]
  - Arteriosclerosis coronary artery [Unknown]
  - Stress cardiomyopathy [Unknown]
  - Cardiogenic shock [Unknown]
  - Left ventricular dysfunction [Recovered/Resolved]
